FAERS Safety Report 7468559-8 (Version None)
Quarter: 2011Q2

REPORT INFORMATION
  Report Type: 
  Country: None (occurrence: None)
  Receive Date: 20110509
  Receipt Date: 20110413
  Transmission Date: 20111010
  Serious: Yes (Other)
  Sender: FDA-Public Use
  Company Number: US-BAYER-200829328NA

PATIENT
  Age: 62 Year
  Sex: Male

DRUGS (22)
  1. PROHANCE [Suspect]
     Indication: PRODUCT USED FOR UNKNOWN INDICATION
  2. COREG [Concomitant]
     Indication: CARDIAC DISORDER
  3. OMNISCAN [Suspect]
     Indication: PRODUCT USED FOR UNKNOWN INDICATION
  4. WARFARIN [Concomitant]
     Indication: BLOOD PRESSURE ABNORMAL
     Dosage: 5 MG (DAILY DOSE), ,
  5. ANTITHROMBOTIC AGENTS [Concomitant]
  6. AMIODARONE [Concomitant]
     Indication: CARDIAC DISORDER
  7. LANTUS [Concomitant]
     Indication: DIABETES MELLITUS
  8. AMIODARONE [Concomitant]
     Indication: BLOOD PRESSURE ABNORMAL
     Dosage: 200 MG (DAILY DOSE), ,
  9. HYDRALAZINE HCL [Concomitant]
     Indication: BLOOD PRESSURE ABNORMAL
     Dosage: 25 MG (DAILY DOSE), ,
  10. MULTIHANCE [Suspect]
     Indication: PRODUCT USED FOR UNKNOWN INDICATION
  11. COREG [Concomitant]
     Indication: BLOOD PRESSURE ABNORMAL
  12. WARFARIN [Concomitant]
     Indication: CARDIAC DISORDER
  13. MAGNEVIST [Suspect]
     Indication: RENAL FAILURE
     Dates: start: 20041202, end: 20041202
  14. OPTIMARK [Suspect]
     Indication: PRODUCT USED FOR UNKNOWN INDICATION
  15. LISINOPRIL [Concomitant]
     Indication: BLOOD PRESSURE ABNORMAL
     Dosage: 10 MG (DAILY DOSE), ,
  16. IRON [IRON] [Concomitant]
     Indication: DIALYSIS
     Dosage: ON DIALYSIS DAYS
  17. VITAMINS [Concomitant]
  18. MAGNEVIST [Suspect]
     Indication: ANGIOGRAM
  19. LISINOPRIL [Concomitant]
     Indication: CARDIAC DISORDER
  20. HYDRALAZINE HCL [Concomitant]
     Indication: CARDIAC DISORDER
  21. HUMALOG [Concomitant]
     Indication: DIABETES MELLITUS
  22. PROCRIT [Concomitant]
     Indication: BLOOD PRESSURE ABNORMAL
     Dosage: ON DIALYSIS DAYS

REACTIONS (23)
  - EMOTIONAL DISTRESS [None]
  - SKIN ULCER [None]
  - JOINT SWELLING [None]
  - NEPHROGENIC SYSTEMIC FIBROSIS [None]
  - PAIN IN EXTREMITY [None]
  - ANXIETY [None]
  - JOINT INSTABILITY [None]
  - MUSCULOSKELETAL CHEST PAIN [None]
  - PAIN [None]
  - SKIN INDURATION [None]
  - MOTOR DYSFUNCTION [None]
  - ABASIA [None]
  - FATIGUE [None]
  - GENERAL PHYSICAL HEALTH DETERIORATION [None]
  - MOBILITY DECREASED [None]
  - MUSCULAR WEAKNESS [None]
  - ARTHRALGIA [None]
  - BURNING SENSATION [None]
  - INJURY [None]
  - RASH [None]
  - PRURITUS [None]
  - CHEST PAIN [None]
  - BACK PAIN [None]
